FAERS Safety Report 16796314 (Version 3)
Quarter: 2019Q4

REPORT INFORMATION
  Report Type: Spontaneous
  Country: US (occurrence: US)
  Receive Date: 20190911
  Receipt Date: 20191025
  Transmission Date: 20200122
  Serious: Yes (Other)
  Sender: FDA-Public Use
  Company Number: US-GLAXOSMITHKLINE-US2019GSK163926

PATIENT
  Sex: Male

DRUGS (4)
  1. ESOMEPRAZOLE. [Suspect]
     Active Substance: ESOMEPRAZOLE MAGNESIUM
     Indication: DYSPEPSIA
     Dosage: UNK
     Route: 065
  2. PREVACID [Suspect]
     Active Substance: LANSOPRAZOLE
     Indication: DYSPEPSIA
     Dosage: UNK
     Route: 065
  3. OMEPRAZOLE. [Suspect]
     Active Substance: OMEPRAZOLE
     Indication: PRODUCT USED FOR UNKNOWN INDICATION
     Dosage: UNK
     Route: 065
  4. PANTOPRAZOLE [Suspect]
     Active Substance: PANTOPRAZOLE
     Indication: PRODUCT USED FOR UNKNOWN INDICATION
     Dosage: 40 MG, QD
     Route: 048

REACTIONS (17)
  - End stage renal disease [Unknown]
  - Renal transplant [Unknown]
  - Infectious disease carrier [Unknown]
  - Acute kidney injury [Unknown]
  - Nephrogenic anaemia [Unknown]
  - Renal cyst [Unknown]
  - Haematuria [Unknown]
  - Dysuria [Unknown]
  - Proteinuria [Unknown]
  - Renal injury [Unknown]
  - Diabetic nephropathy [Unknown]
  - Renal impairment [Unknown]
  - Haemodialysis [Unknown]
  - Dialysis [Unknown]
  - Nocturia [Unknown]
  - Chronic kidney disease [Unknown]
  - Peritoneal dialysis [Unknown]
